FAERS Safety Report 10576151 (Version 1)
Quarter: 2014Q4

REPORT INFORMATION
  Report Type: Spontaneous
  Country: US (occurrence: None)
  Receive Date: 20141110
  Receipt Date: 20141110
  Transmission Date: 20150529
  Serious: Yes (Disabling, Other)
  Sender: FDA-Public Use
  Company Number: None

PATIENT
  Age: 53 Year
  Sex: Female
  Weight: 55.79 kg

DRUGS (4)
  1. METHOTREXATE [Concomitant]
     Active Substance: METHOTREXATE
  2. FOLIC ACID. [Concomitant]
     Active Substance: FOLIC ACID
  3. CIMZIA [Suspect]
     Active Substance: CERTOLIZUMAB PEGOL
     Indication: RHEUMATOID ARTHRITIS
     Dosage: 400 MG ?MONTHLY?SUBCUTANEOUS
     Route: 058
     Dates: start: 20140729, end: 20140911
  4. ENBREL [Suspect]
     Active Substance: ETANERCEPT
     Indication: RHEUMATOID ARTHRITIS
     Dosage: ONE SYRINGE ?WEEKLY?SUBCUTANEOUS
     Route: 058
     Dates: start: 20140717, end: 20140722

REACTIONS (2)
  - Inflammatory myofibroblastic tumour [None]
  - Chest pain [None]

NARRATIVE: CASE EVENT DATE: 20140717
